FAERS Safety Report 10607876 (Version 1)
Quarter: 2014Q4

REPORT INFORMATION
  Report Type: Spontaneous
  Country: US (occurrence: US)
  Receive Date: 20141125
  Receipt Date: 20141125
  Transmission Date: 20150529
  Serious: Yes (Other)
  Sender: FDA-Public Use
  Company Number: US-PFIZER INC-2014319886

PATIENT
  Sex: Male

DRUGS (1)
  1. VFEND [Suspect]
     Active Substance: VORICONAZOLE
     Dosage: UNK

REACTIONS (5)
  - Eye haemorrhage [Unknown]
  - Vision blurred [Unknown]
  - Gait disturbance [Unknown]
  - Hepatic failure [Unknown]
  - Chronic obstructive pulmonary disease [Unknown]
